FAERS Safety Report 23760905 (Version 1)
Quarter: 2024Q2

REPORT INFORMATION
  Report Type: Spontaneous
  Country: US (occurrence: None)
  Receive Date: 20240419
  Receipt Date: 20240419
  Transmission Date: 20240716
  Serious: Yes (Other)
  Sender: FDA-Public Use
  Company Number: US-INFO-20240095

PATIENT
  Sex: Female

DRUGS (1)
  1. ROPIVACAINE HYDROCHLORIDE [Suspect]
     Active Substance: ROPIVACAINE HYDROCHLORIDE
     Indication: Labour pain
     Dosage: THE REPORTER DID NOT HAVE INFORMATION REGARDING THE DOSES THAT WERE GIVEN. ()
     Route: 008

REACTIONS (1)
  - Drug ineffective [Unknown]
